FAERS Safety Report 12487617 (Version 1)
Quarter: 2016Q2

REPORT INFORMATION
  Report Type: Spontaneous
  Country: US (occurrence: US)
  Receive Date: 20160622
  Receipt Date: 20160622
  Transmission Date: 20160815
  Serious: No
  Sender: FDA-Public Use
  Company Number: US-009507513-1606USA004122

PATIENT
  Sex: Female

DRUGS (1)
  1. COZAAR [Suspect]
     Active Substance: LOSARTAN POTASSIUM
     Dosage: 25 MG, QD (DAILY)
     Route: 048
     Dates: start: 2010

REACTIONS (4)
  - Headache [Unknown]
  - Blood pressure abnormal [Unknown]
  - Eye disorder [Unknown]
  - Swelling face [Unknown]
